FAERS Safety Report 10411720 (Version 1)
Quarter: 2014Q3

REPORT INFORMATION
  Report Type: Report from Study
  Country: US (occurrence: US)
  Receive Date: 20140827
  Receipt Date: 20140827
  Transmission Date: 20150326
  Serious: Yes (Other)
  Sender: FDA-Public Use
  Company Number: US-CELGENEUS-163-21880-14083316

PATIENT
  Age: 66 Year
  Sex: Male
  Weight: 94.2 kg

DRUGS (1)
  1. REVLIMID [Suspect]
     Active Substance: LENALIDOMIDE
     Indication: PLASMA CELL MYELOMA
     Dosage: 15 MILLIGRAM
     Route: 048
     Dates: start: 20100104, end: 20140710

REACTIONS (1)
  - B-cell type acute leukaemia [Unknown]

NARRATIVE: CASE EVENT DATE: 20140731
